FAERS Safety Report 8364210-3 (Version None)
Quarter: 2012Q2

REPORT INFORMATION
  Report Type: 
  Country: None (occurrence: None)
  Receive Date: 20120516
  Receipt Date: 20120502
  Transmission Date: 20120825
  Serious: Yes (Death, Other)
  Sender: FDA-Public Use
  Company Number: IT-PFIZER INC-2012108406

PATIENT
  Age: 73 Year
  Sex: Male

DRUGS (7)
  1. TRIMETON [Concomitant]
     Indication: PREMEDICATION
     Dosage: UNK MG/ML, UNK
     Route: 042
     Dates: start: 20120330, end: 20120330
  2. FLUOROURACIL [Suspect]
     Indication: OROPHARYNGEAL CANCER STAGE UNSPECIFIED
     Dosage: 5G/100ML (1580 MG DAILY FOR 5 DAYS WITH A TOTAL DOSE OF 6900 MG)
     Route: 042
     Dates: start: 20120330, end: 20120404
  3. CISPLATIN [Suspect]
     Indication: OROPHARYNGEAL CANCER STAGE UNSPECIFIED
     Dosage: 1 MG/ML (130 MG)
     Route: 042
     Dates: start: 20120330, end: 20120330
  4. ZANTAC [Concomitant]
     Indication: PREMEDICATION
     Dosage: 50MG/5ML
     Route: 042
     Dates: start: 20120330
  5. DOCETAXEL [Suspect]
     Indication: OROPHARYNGEAL CANCER STAGE UNSPECIFIED
     Dosage: 10 MG/ML (130 MG)
     Route: 042
     Dates: start: 20120330, end: 20120330
  6. ALOXI [Concomitant]
     Indication: PREMEDICATION
     Dosage: 250 UG, UNK
     Dates: start: 20120330, end: 20120330
  7. DESAMETASONE FOSFATO HOSPIRA [Concomitant]
     Indication: PREMEDICATION
     Dosage: 8 MG/2ML

REACTIONS (5)
  - DYSPHAGIA [None]
  - THROMBOCYTOPENIA [None]
  - ORAL FUNGAL INFECTION [None]
  - LEUKOPENIA [None]
  - SEPTIC SHOCK [None]
